FAERS Safety Report 12094325 (Version 1)
Quarter: 2016Q1

REPORT INFORMATION
  Report Type: Spontaneous
  Country: US (occurrence: US)
  Receive Date: 20160219
  Receipt Date: 20160219
  Transmission Date: 20160526
  Serious: Yes (Other)
  Sender: FDA-Public Use
  Company Number: US-BANPHARM-20164661

PATIENT
  Age: 77 Year
  Sex: Female
  Weight: 88.45 kg

DRUGS (4)
  1. CRESTOR [Concomitant]
     Active Substance: ROSUVASTATIN CALCIUM
  2. TRAMADOL. [Concomitant]
     Active Substance: TRAMADOL
  3. TYLENOL [Concomitant]
     Active Substance: ACETAMINOPHEN
  4. ALEVE [Suspect]
     Active Substance: NAPROXEN SODIUM
     Indication: ARTHRITIS
     Dosage: 1 DF, BID,
     Route: 048
     Dates: end: 2015

REACTIONS (4)
  - Chronic kidney disease [Unknown]
  - Product use issue [Recovered/Resolved]
  - Expired product administered [Recovered/Resolved]
  - Intentional product use issue [Recovered/Resolved]
